FAERS Safety Report 5099444-7 (Version None)
Quarter: 2006Q3

REPORT INFORMATION
  Report Type: 
  Country: None (occurrence: None)
  Receive Date: 20060908
  Receipt Date: 20060901
  Transmission Date: 20061208
  Serious: Yes (Hospitalization)
  Sender: FDA-Public Use
  Company Number: CH-BAYER-200613810GDS

PATIENT
  Age: 61 Year
  Sex: Male
  Weight: 63 kg

DRUGS (18)
  1. ASPIRIN [Suspect]
     Indication: ACUTE MYOCARDIAL INFARCTION
     Route: 048
     Dates: start: 20060601
  2. PHENPROCOUMON [Interacting]
     Indication: INTRACARDIAC THROMBUS
     Route: 048
     Dates: start: 20060601, end: 20060729
  3. CLOPIDOGREL [Interacting]
     Indication: THROMBOSIS PROPHYLAXIS
     Route: 065
     Dates: start: 20060601
  4. NYSTATIN [Concomitant]
     Indication: DRUG USE FOR UNKNOWN INDICATION
     Route: 048
  5. FUROSEMIDE [Concomitant]
     Indication: RENAL FAILURE CHRONIC
     Route: 048
  6. PREDNISOLONE [Concomitant]
     Indication: RENAL TRANSPLANT
     Route: 048
  7. CALCIUM ACETATE [Concomitant]
     Indication: OSTEOPOROSIS
     Dosage: TOTAL DAILY DOSE: 80 MG
     Route: 048
  8. PRAVASTATIN [Concomitant]
     Indication: MYOCARDIAL ISCHAEMIA
     Route: 048
  9. LISINOPRIL [Concomitant]
     Indication: HYPERTENSION
     Route: 048
  10. METOPROLOL TARTRATE [Concomitant]
     Indication: ACUTE MYOCARDIAL INFARCTION
     Dosage: TOTAL DAILY DOSE: 150 MG
     Route: 048
  11. AMLODIPINE [Concomitant]
     Indication: HYPERTENSION
     Route: 048
  12. MYCOPHENOLIC ACID [Concomitant]
     Indication: RENAL TRANSPLANT
     Dosage: TOTAL DAILY DOSE: 1500 MG
     Route: 048
  13. CYCLOSPORINE [Concomitant]
     Indication: RENAL TRANSPLANT
     Dosage: TOTAL DAILY DOSE: 50 MG
     Route: 048
  14. PAROXETINE HCL [Concomitant]
     Indication: DEPRESSION
     Route: 048
  15. ACYCLOVIR [Concomitant]
     Indication: EYE INFECTION VIRAL
     Dosage: TOTAL DAILY DOSE: 1200 MG
     Route: 048
  16. ESOMEPRAZOLE MAGNESIUM [Concomitant]
     Indication: DRUG USE FOR UNKNOWN INDICATION
     Route: 048
  17. ALLOPURINOL [Concomitant]
     Indication: GOUT
     Route: 048
  18. DARBEPOETIN ALFA [Concomitant]
     Indication: ANAEMIA
     Route: 058

REACTIONS (5)
  - HAEMATOMA [None]
  - HAEMORRHAGE [None]
  - INTRACARDIAC THROMBUS [None]
  - MEDICATION ERROR [None]
  - PROTHROMBIN TIME PROLONGED [None]
